FAERS Safety Report 6223797-7 (Version None)
Quarter: 2009Q2

REPORT INFORMATION
  Report Type: 
  Country: None (occurrence: None)
  Receive Date: 20090611
  Receipt Date: 20090603
  Transmission Date: 20091009
  Serious: Yes (Other)
  Sender: FDA-Public Use
  Company Number: US-JNJCH-2009015512

PATIENT
  Age: 29 Year
  Sex: Male

DRUGS (2)
  1. IBUPROFEN [Suspect]
     Indication: DRUG USE FOR UNKNOWN INDICATION
     Dosage: TEXT:2 TABLETS ONCE
     Route: 048
     Dates: start: 20090603, end: 20090603
  2. SUDAFED PE SEVERE COLD CAPLET [Suspect]
     Indication: NASOPHARYNGITIS
     Dosage: TEXT:2 CAPLETS ONCE
     Route: 048
     Dates: start: 20090603, end: 20090603

REACTIONS (2)
  - CONDITION AGGRAVATED [None]
  - DIZZINESS [None]
